FAERS Safety Report 23576489 (Version 1)
Quarter: 2024Q1

REPORT INFORMATION
  Report Type: Spontaneous
  Country: US (occurrence: US)
  Receive Date: 20240228
  Receipt Date: 20240228
  Transmission Date: 20240409
  Serious: No
  Sender: FDA-Public Use
  Company Number: US-UPSHER-SMITH LABORATORIES, LLC-2023USL00469

PATIENT
  Age: 13 Year
  Sex: Male
  Weight: 42.177 kg

DRUGS (4)
  1. MYORISAN [Suspect]
     Active Substance: ISOTRETINOIN
     Indication: Acne cystic
     Dosage: 20 MG, 1X/DAY
     Route: 048
     Dates: start: 2022
  2. MYORISAN [Suspect]
     Active Substance: ISOTRETINOIN
     Dosage: INTERMITTENT DOSING OF 20 MG, 1X/DAY (DAYS OFF WHEN SIDE EFFECTS ARE TROUBLESOME)
     Route: 048
  3. ISOTRETINOIN [Suspect]
     Active Substance: ISOTRETINOIN
     Indication: Acne cystic
     Dosage: 20 MG, 1X/DAY
     Route: 048
     Dates: start: 2022
  4. ISOTRETINOIN [Suspect]
     Active Substance: ISOTRETINOIN
     Dosage: INTERMITTENT DOSING OF 20 MG, 1X/DAY (DAYS OFF WHEN SIDE EFFECTS ARE TROUBLESOME)
     Route: 048

REACTIONS (5)
  - Blood triglycerides increased [Unknown]
  - Pigmentation disorder [Recovering/Resolving]
  - Xerosis [Not Recovered/Not Resolved]
  - Cheilitis [Not Recovered/Not Resolved]
  - Inappropriate schedule of product administration [Not Recovered/Not Resolved]

NARRATIVE: CASE EVENT DATE: 20221019
